FAERS Safety Report 7389332-5 (Version None)
Quarter: 2011Q2

REPORT INFORMATION
  Report Type: 
  Country: None (occurrence: None)
  Receive Date: 20110401
  Receipt Date: 20110331
  Transmission Date: 20111010
  Serious: Yes (Other)
  Sender: FDA-Public Use
  Company Number: A0919498A

PATIENT
  Age: 28 Year
  Sex: Female

DRUGS (3)
  1. REYATAZ [Suspect]
     Indication: ANTIVIRAL TREATMENT
     Dosage: 300MGD PER DAY
     Route: 048
     Dates: start: 20100114
  2. NORVIR [Suspect]
     Indication: ANTIVIRAL TREATMENT
     Dosage: 100MGD PER DAY
     Route: 048
     Dates: start: 20100114
  3. COMBIVIR [Suspect]
     Indication: ANTIVIRAL TREATMENT
     Dosage: 2TAB PER DAY
     Route: 048
     Dates: start: 20100114

REACTIONS (5)
  - PLACENTAL DISORDER [None]
  - STILLBIRTH [None]
  - PLACENTAL INSUFFICIENCY [None]
  - PLACENTAL INFARCTION [None]
  - DRUG EXPOSURE DURING PREGNANCY [None]
